FAERS Safety Report 6170791-0 (Version None)
Quarter: 2009Q2

REPORT INFORMATION
  Report Type: 
  Country: None (occurrence: None)
  Receive Date: 20090428
  Receipt Date: 20090422
  Transmission Date: 20091009
  Serious: Yes (Life-Threatening)
  Sender: FDA-Public Use
  Company Number: CH-ASTRAZENECA-2009PK01132

PATIENT
  Age: 19 Year
  Sex: Male

DRUGS (7)
  1. PROPOFOL [Suspect]
     Indication: ANAESTHESIA
     Dosage: 200 MG/H
     Route: 041
     Dates: start: 20090406, end: 20090410
  2. PROPOFOL [Suspect]
     Route: 041
     Dates: start: 20090414, end: 20090414
  3. DALACIN C PHOSPHAT [Concomitant]
     Indication: BACTERIAL INFECTION
     Route: 041
     Dates: start: 20090406, end: 20090415
  4. MERONEM [Concomitant]
     Route: 041
     Dates: start: 20090406, end: 20090411
  5. NEXIUM [Concomitant]
     Route: 041
     Dates: start: 20090406, end: 20090415
  6. HEPARIN [Concomitant]
     Route: 041
     Dates: start: 20090406, end: 20090415
  7. VOLTAREN [Concomitant]
     Route: 041
     Dates: start: 20090406, end: 20090415

REACTIONS (2)
  - BLOOD CREATINE PHOSPHOKINASE INCREASED [None]
  - MYOGLOBIN BLOOD INCREASED [None]
